FAERS Safety Report 16920415 (Version 1)
Quarter: 2019Q4

REPORT INFORMATION
  Report Type: Report from Study
  Country: CA (occurrence: CA)
  Receive Date: 20191015
  Receipt Date: 20191015
  Transmission Date: 20200122
  Serious: Yes (Hospitalization, Other)
  Sender: FDA-Public Use
  Company Number: CA-JNJFOC-20190714529

PATIENT
  Age: 41 Year
  Sex: Female

DRUGS (2)
  1. REMICADE [Suspect]
     Active Substance: INFLIXIMAB
     Indication: COLITIS ULCERATIVE
     Dosage: STRENGTH = 100 MG
     Route: 042
     Dates: start: 20111208
  2. TRANDATE [Concomitant]
     Active Substance: LABETALOL HYDROCHLORIDE

REACTIONS (8)
  - Dyspnoea [Recovering/Resolving]
  - Nervous system disorder [Unknown]
  - Feeling abnormal [Unknown]
  - Palpitations [Recovering/Resolving]
  - Dysarthria [Unknown]
  - Lupus-like syndrome [Unknown]
  - Hypoaesthesia [Unknown]
  - Asthenia [Unknown]

NARRATIVE: CASE EVENT DATE: 20190702
